FAERS Safety Report 20681165 (Version 1)
Quarter: 2022Q2

REPORT INFORMATION
  Report Type: Spontaneous
  Country: US (occurrence: US)
  Receive Date: 20220406
  Receipt Date: 20220406
  Transmission Date: 20220721
  Serious: No
  Sender: FDA-Public Use
  Company Number: US-JNJFOC-20220404506

PATIENT

DRUGS (3)
  1. PEPCID [Suspect]
     Active Substance: FAMOTIDINE
     Indication: Hypersensitivity
     Route: 065
  2. PEPCID [Suspect]
     Active Substance: FAMOTIDINE
     Indication: Gastric disorder
  3. ZYRTEC [Concomitant]
     Active Substance: CETIRIZINE HYDROCHLORIDE
     Indication: Hypersensitivity
     Route: 065

REACTIONS (2)
  - Product use in unapproved indication [Unknown]
  - Therapeutic response unexpected [Unknown]
